FAERS Safety Report 20974830 (Version 1)
Quarter: 2022Q2

REPORT INFORMATION
  Report Type: Spontaneous
  Country: AU (occurrence: AU)
  Receive Date: 20220617
  Receipt Date: 20220617
  Transmission Date: 20220721
  Serious: Yes (Other)
  Sender: FDA-Public Use
  Company Number: AU-MYLANLABS-2022M1046000

PATIENT
  Age: 40 Year
  Sex: Male

DRUGS (3)
  1. DOXORUBICIN [Suspect]
     Active Substance: DOXORUBICIN
     Indication: Nephroblastoma
     Dosage: 30 MILLIGRAM/SQ. METER, Q3W, COMPLETED TOTAL 8 CYCLES.
     Route: 042
  2. VINCRISTINE [Suspect]
     Active Substance: VINCRISTINE
     Indication: Nephroblastoma
     Dosage: 1.5 MILLIGRAM/SQ. METER, Q3W (UP TO A MAXIMUM OF 2MG. COMPLETED TOTAL 8 CYCLES.)
     Route: 042
  3. ACTINOMYCIN D [Suspect]
     Active Substance: DACTINOMYCIN
     Indication: Nephroblastoma
     Dosage: 1.5 MILLIGRAM/SQ. METER, Q3W, (UP TO A MAXIMUM OF 2MG. COMPLETED TOTAL 8 CYCLES.)
     Route: 042

REACTIONS (13)
  - Hepatitis [Recovered/Resolved]
  - Neuropathy peripheral [Recovered/Resolved]
  - Neutropenia [Recovered/Resolved]
  - Lethargy [Recovered/Resolved]
  - Taste disorder [Recovered/Resolved]
  - Hyperaesthesia [Recovered/Resolved]
  - Blood creatinine increased [Recovered/Resolved]
  - Fatigue [Recovered/Resolved]
  - Lymphopenia [Recovered/Resolved]
  - Mucosal inflammation [Recovered/Resolved]
  - Stomatitis [Recovered/Resolved]
  - Alopecia [Recovered/Resolved]
  - Nausea [Recovered/Resolved]
